FAERS Safety Report 5606845-4 (Version None)
Quarter: 2008Q1

REPORT INFORMATION
  Report Type: 
  Country: None (occurrence: None)
  Receive Date: 20080129
  Receipt Date: 20080123
  Transmission Date: 20080703
  Serious: Yes (Other)
  Sender: FDA-Public Use
  Company Number: JP-BOEHRINGER INGELHEIM GMBH, GERMANY-2008-BP-01146NB

PATIENT
  Age: 56 Year
  Sex: Male

DRUGS (1)
  1. MICARDIS [Suspect]
     Route: 048

REACTIONS (1)
  - HEPATITIS [None]
